FAERS Safety Report 9204987 (Version 5)
Quarter: 2013Q4

REPORT INFORMATION
  Report Type: Spontaneous
  Country: US (occurrence: US)
  Receive Date: 20130402
  Receipt Date: 20131028
  Transmission Date: 20140711
  Serious: Yes (Hospitalization, Other)
  Sender: FDA-Public Use
  Company Number: US-BAYER-2013-039239

PATIENT
  Age: 17 Year
  Sex: Female
  Weight: 86.17 kg

DRUGS (1)
  1. OCELLA [Suspect]
     Indication: CONTRACEPTION

REACTIONS (17)
  - Gallbladder disorder [None]
  - Injury [None]
  - Abdominal pain upper [None]
  - Emotional distress [None]
  - Anxiety [None]
  - Anhedonia [None]
  - Pain [None]
  - Frequent bowel movements [None]
  - Dyspepsia [None]
  - Scar [None]
  - Vomiting [None]
  - Constipation [None]
  - Basedow^s disease [None]
  - Angina pectoris [None]
  - Palpitations [None]
  - Panic attack [None]
  - Cholecystitis chronic [None]
